FAERS Safety Report 9603800 (Version 1)
Quarter: 2013Q4

REPORT INFORMATION
  Report Type: Spontaneous
  Country: DE (occurrence: DE)
  Receive Date: 20131008
  Receipt Date: 20131008
  Transmission Date: 20140711
  Serious: Yes (Other)
  Sender: FDA-Public Use
  Company Number: GXKR2013DE003191

PATIENT
  Sex: Female

DRUGS (1)
  1. ALENDRONATE [Suspect]
     Route: 065

REACTIONS (1)
  - Hypoacusis [Unknown]
